FAERS Safety Report 20028407 (Version 1)
Quarter: 2021Q4

REPORT INFORMATION
  Report Type: Spontaneous
  Country: CA (occurrence: CA)
  Receive Date: 20211103
  Receipt Date: 20211103
  Transmission Date: 20220303
  Serious: Yes (Hospitalization, Other)
  Sender: FDA-Public Use
  Company Number: CA-TEVA-2021-CA-1971625

PATIENT
  Age: 74 Year
  Sex: Female

DRUGS (13)
  1. SILDENAFIL CITRATE [Suspect]
     Active Substance: SILDENAFIL CITRATE
     Indication: Pulmonary hypertension
     Dosage: 120 MILLIGRAM DAILY;
     Route: 048
  2. AMIODARONE [Concomitant]
     Active Substance: AMIODARONE
  3. CYCLOSPORINE [Concomitant]
     Active Substance: CYCLOSPORINE
  4. DABIGATRAN [Concomitant]
     Active Substance: DABIGATRAN
  5. DABIGATRAN ETEXILATE MESYLATE [Concomitant]
     Active Substance: DABIGATRAN ETEXILATE MESYLATE
  6. FUROSEMIDE [Concomitant]
     Active Substance: FUROSEMIDE
  7. LEVOTHYROXINE SODIUM [Concomitant]
     Active Substance: LEVOTHYROXINE SODIUM
  8. METOLAZONE [Concomitant]
     Active Substance: METOLAZONE
  9. METOPROLOL [Concomitant]
     Active Substance: METOPROLOL
  10. MIRTAZAPINE [Concomitant]
     Active Substance: MIRTAZAPINE
  11. PANTOPRAZOLE [Concomitant]
     Active Substance: PANTOPRAZOLE
  12. THYROXINE [Concomitant]
     Active Substance: LEVOTHYROXINE
  13. ZOSTAVAX,VARILRIX III [Concomitant]

REACTIONS (4)
  - Fall [Unknown]
  - Hip fracture [Unknown]
  - Product use issue [Unknown]
  - Off label use [Unknown]
